FAERS Safety Report 10945322 (Version 1)
Quarter: 2015Q1

REPORT INFORMATION
  Report Type: Spontaneous
  Country: US (occurrence: US)
  Receive Date: 20150323
  Receipt Date: 20150323
  Transmission Date: 20150721
  Serious: Yes (Hospitalization)
  Sender: FDA-Public Use
  Company Number: US-BAYER-US-SHR-03-014893

PATIENT
  Age: 42 Year
  Sex: Female

DRUGS (2)
  1. ACETYLSALICYLIC ACID [Suspect]
     Active Substance: ASPIRIN
     Indication: ANKLE FRACTURE
     Dosage: UNK, UNK
     Dates: start: 20030811, end: 20030826
  2. YASMIN [Suspect]
     Active Substance: DROSPIRENONE\ETHINYL ESTRADIOL
     Indication: GENITAL HAEMORRHAGE
     Dosage: 1 TAB, 1X/DAY
     Route: 048
     Dates: start: 200209, end: 20030826

REACTIONS (2)
  - Thrombosis [Recovering/Resolving]
  - Deep vein thrombosis [None]

NARRATIVE: CASE EVENT DATE: 20030826
